FAERS Safety Report 4736249-8 (Version None)
Quarter: 2005Q3

REPORT INFORMATION
  Report Type: 
  Country: None (occurrence: None)
  Receive Date: 20050805
  Receipt Date: 20050805
  Transmission Date: 20060218
  Serious: Yes (Hospitalization)
  Sender: FDA-Public Use
  Company Number: None

PATIENT
  Age: 54 Year
  Sex: Male
  Weight: 106.5 kg

DRUGS (19)
  1. THYMOGLOBULIN [Suspect]
     Indication: TRANSPLANT REJECTION
     Dosage: 80 MG  ONCE DAILY INTRAVENOU;  100 MG  ONCE DAILY  INTRAVENOU
     Route: 042
     Dates: start: 20050705, end: 20050707
  2. THYMOGLOBULIN [Suspect]
     Indication: TRANSPLANT REJECTION
     Dosage: 80 MG  ONCE DAILY INTRAVENOU;  100 MG  ONCE DAILY  INTRAVENOU
     Route: 042
     Dates: start: 20050708, end: 20050709
  3. NEORAL [Concomitant]
  4. MYCELEX [Concomitant]
  5. ECOTRIN [Concomitant]
  6. OSCAL [Concomitant]
  7. CLONIDINE TTS-2 [Concomitant]
  8. ARANESP [Concomitant]
  9. CARDURA [Concomitant]
  10. FOLATE [Concomitant]
  11. LASIX [Concomitant]
  12. LANTUS [Concomitant]
  13. IMDUR [Concomitant]
  14. MAGOX [Concomitant]
  15. M.V.I. [Concomitant]
  16. PROTONIX [Concomitant]
  17. PREDNISON [Concomitant]
  18. PRAVACHOL [Concomitant]
  19. BACTRIM DS [Concomitant]

REACTIONS (4)
  - COUGH [None]
  - JOINT STIFFNESS [None]
  - RENAL FAILURE [None]
  - SERUM SICKNESS [None]
